FAERS Safety Report 24924082 (Version 1)
Quarter: 2025Q1

REPORT INFORMATION
  Report Type: Spontaneous
  Country: US (occurrence: US)
  Receive Date: 20250204
  Receipt Date: 20250204
  Transmission Date: 20250409
  Serious: No
  Sender: MERCK
  Company Number: US-009507513-2502USA001057

PATIENT
  Age: 68 Year
  Sex: Female

DRUGS (1)
  1. JANUVIA [Suspect]
     Active Substance: SITAGLIPTIN PHOSPHATE
     Route: 048
     Dates: end: 20241229

REACTIONS (4)
  - Hyperglycaemia [Unknown]
  - Product dose omission issue [Unknown]
  - Product use issue [Unknown]
  - Inability to afford medication [Unknown]

NARRATIVE: CASE EVENT DATE: 20241230
